FAERS Safety Report 10594022 (Version 2)
Quarter: 2015Q1

REPORT INFORMATION
  Report Type: Spontaneous
  Country: US (occurrence: US)
  Receive Date: 20141119
  Receipt Date: 20150216
  Transmission Date: 20150720
  Serious: Yes (Death, Hospitalization, Other)
  Sender: FDA-Public Use
  Company Number: US-GLAXOSMITHKLINE-US2014GSK023698

PATIENT
  Age: 58 Year
  Sex: Female

DRUGS (2)
  1. PAZOPANIB [Suspect]
     Active Substance: PAZOPANIB
     Indication: CHOLANGIOCARCINOMA
  2. TRAMETINIB [Concomitant]
     Active Substance: TRAMETINIB

REACTIONS (14)
  - Hypertension [Unknown]
  - Metastases to central nervous system [Unknown]
  - Seizure [Unknown]
  - Ammonia increased [Unknown]
  - Death [Fatal]
  - Thrombocytopenia [Unknown]
  - Hyperbilirubinaemia [Unknown]
  - International normalised ratio increased [Unknown]
  - Posterior reversible encephalopathy syndrome [Unknown]
  - Fatigue [Unknown]
  - Lethargy [Unknown]
  - Aspartate aminotransferase increased [Unknown]
  - Acute hepatic failure [Fatal]
  - Alanine aminotransferase increased [Unknown]
